FAERS Safety Report 5755450-8 (Version None)
Quarter: 2008Q2

REPORT INFORMATION
  Report Type: 
  Country: None (occurrence: None)
  Receive Date: 20080602
  Receipt Date: 20080527
  Transmission Date: 20081010
  Serious: Yes (Other)
  Sender: FDA-Public Use
  Company Number: IE-AVENTIS-200813143GDDC

PATIENT
  Age: 64 Year
  Sex: Male

DRUGS (1)
  1. LANTUS [Suspect]
     Route: 058
     Dates: start: 20051001

REACTIONS (3)
  - FEELING ABNORMAL [None]
  - HERPES ZOSTER [None]
  - MUSCLE SPASMS [None]
